FAERS Safety Report 6383656-6 (Version None)
Quarter: 2009Q3

REPORT INFORMATION
  Report Type: 
  Country: None (occurrence: None)
  Receive Date: 20090929
  Receipt Date: 20090929
  Transmission Date: 20100115
  Serious: Yes (Other)
  Sender: FDA-Public Use
  Company Number: None

PATIENT
  Sex: Female
  Weight: 74.3899 kg

DRUGS (1)
  1. CHANTIX [Suspect]
     Indication: NICOTINE DEPENDENCE
     Dosage: BID PO
     Route: 048

REACTIONS (4)
  - ABNORMAL DREAMS [None]
  - CHEST PAIN [None]
  - DIZZINESS POSTURAL [None]
  - NIGHTMARE [None]
